FAERS Safety Report 10196849 (Version 2)
Quarter: 2014Q2

REPORT INFORMATION
  Report Type: Spontaneous
  Country: CA (occurrence: CA)
  Receive Date: 20140527
  Receipt Date: 20140527
  Transmission Date: 20141212
  Serious: Yes (Other)
  Sender: FDA-Public Use
  Company Number: CA-AMGEN-CANSP2012082177

PATIENT
  Age: 67 Year
  Sex: Female

DRUGS (14)
  1. ENBREL [Suspect]
     Indication: PSORIATIC ARTHROPATHY
     Dosage: 50 MG, UNK
     Route: 065
     Dates: start: 20120209
  2. ENBREL [Suspect]
     Indication: PSORIASIS
  3. LOSEC                              /00661201/ [Concomitant]
     Dosage: 20 MG, UNK
  4. ELAVIL                             /00002202/ [Concomitant]
     Dosage: 50 MG, UNK
  5. METHOTREXATE [Concomitant]
     Dosage: 25 MG, QWK (2.5 MG, 10 TABLETS)
  6. NAPROXEN [Concomitant]
     Dosage: 750 MG, 2/DAY
  7. LEUCOVORIN CALCIUM                 /00566702/ [Concomitant]
     Dosage: UNK
  8. SYNTHROID [Concomitant]
     Dosage: UNK
  9. ACCUPRIL [Concomitant]
     Dosage: UNK
  10. DIURETIC                           /00022001/ [Concomitant]
     Dosage: UNK, 2/DAY
  11. CYCLOBENZAPRINE                    /00428402/ [Concomitant]
     Dosage: 10 MG, 2/DAYS
  12. CORTODERM                          /00028601/ [Concomitant]
     Dosage: UNK
  13. VITAMIN D                          /00107901/ [Concomitant]
     Dosage: UNK
  14. CALCIUM [Concomitant]
     Dosage: UNK

REACTIONS (5)
  - Infection susceptibility increased [Not Recovered/Not Resolved]
  - Sinusitis [Unknown]
  - Fungal infection [Not Recovered/Not Resolved]
  - Laryngitis [Not Recovered/Not Resolved]
  - Arthritis [Unknown]
